FAERS Safety Report 25130124 (Version 1)
Quarter: 2025Q1

REPORT INFORMATION
  Report Type: Spontaneous
  Country: US (occurrence: US)
  Receive Date: 20250327
  Receipt Date: 20250327
  Transmission Date: 20250408
  Serious: Yes (Other)
  Sender: PFIZER
  Company Number: US-PFIZER INC-202500064509

PATIENT
  Age: 74 Year
  Sex: Female

DRUGS (1)
  1. XELJANZ XR [Suspect]
     Active Substance: TOFACITINIB CITRATE
     Indication: Rheumatoid arthritis
     Dosage: 11 MG, DAILY

REACTIONS (12)
  - Diabetes mellitus [Unknown]
  - Iron deficiency anaemia [Unknown]
  - Joint injury [Unknown]
  - Rheumatoid arthritis [Recovering/Resolving]
  - Varicella zoster virus infection [Recovered/Resolved]
  - Post herpetic neuralgia [Unknown]
  - Monoclonal gammopathy [Unknown]
  - Hypergammaglobulinaemia benign monoclonal [Unknown]
  - Iron deficiency anaemia [Unknown]
  - Microcytosis [Unknown]
  - Red blood cell sedimentation rate increased [Unknown]
  - Pain [Not Recovered/Not Resolved]
